FAERS Safety Report 24041392 (Version 1)
Quarter: 2024Q3

REPORT INFORMATION
  Report Type: Spontaneous
  Country: CN (occurrence: CN)
  Receive Date: 20240702
  Receipt Date: 20240702
  Transmission Date: 20241016
  Serious: Yes (Hospitalization, Other)
  Sender: BAXTER
  Company Number: None

PATIENT
  Age: 60 Year
  Sex: Female
  Weight: 41 kg

DRUGS (2)
  1. CYCLOPHOSPHAMIDE [Suspect]
     Active Substance: CYCLOPHOSPHAMIDE
     Indication: Diffuse large B-cell lymphoma
     Dosage: 1200 MG, ONE TIME IN ONE DAY, DILUTED WITH 500 ML OF 0.9% SODIUM CHLORIDE
     Route: 041
     Dates: start: 20240602, end: 20240603
  2. SODIUM CHLORIDE [Suspect]
     Active Substance: SODIUM CHLORIDE
     Indication: Medication dilution
     Dosage: 500 ML, ONE TIME IN ONE DAY, STRENGTH: 0.9%, DOSAGE FORM: INJECTION, USED TO DILUTE 1200 MG OF CYCLO
     Route: 041
     Dates: start: 20240602, end: 20240603

REACTIONS (1)
  - Myelosuppression [Unknown]

NARRATIVE: CASE EVENT DATE: 20240612
